FAERS Safety Report 8533293-X (Version None)
Quarter: 2012Q3

REPORT INFORMATION
  Report Type: 
  Country: None (occurrence: None)
  Receive Date: 20120724
  Receipt Date: 20120712
  Transmission Date: 20120928
  Serious: Yes (Other)
  Sender: FDA-Public Use
  Company Number: US-SANOFI-AVENTIS-2012SA050324

PATIENT
  Age: 63 Year
  Sex: Female
  Weight: 64 kg

DRUGS (17)
  1. MOBIC [Suspect]
     Indication: SWELLING
     Route: 065
  2. SULFASALAZINE [Suspect]
     Indication: ARTHRITIS
     Route: 065
  3. AZITHROMYCIN [Suspect]
     Route: 065
  4. PLAQUENIL [Suspect]
     Indication: SWELLING
  5. CELEBREX [Suspect]
     Indication: SWELLING
     Route: 048
     Dates: start: 20120201
  6. ASPIRIN [Concomitant]
     Dates: start: 20110101
  7. CELEBREX [Suspect]
     Indication: ARTHRITIS
     Route: 048
     Dates: start: 20120201
  8. NAPROXEN (ALEVE) [Suspect]
     Indication: ARTHRITIS
  9. PLAQUENIL [Suspect]
     Indication: ARTHRITIS
  10. NAPROXEN (ALEVE) [Suspect]
     Indication: SWELLING
  11. SULFASALAZINE [Suspect]
     Indication: SWELLING
     Route: 065
  12. MOBIC [Suspect]
     Indication: ARTHRITIS
     Route: 065
  13. IBUPROFEN [Suspect]
     Indication: ARTHRITIS
     Route: 065
  14. IBUPROFEN [Suspect]
     Indication: SWELLING
     Route: 065
  15. DOXYCYCLINE [Concomitant]
     Indication: LYME DISEASE
     Dates: start: 20120601
  16. METHYLPREDNISOLONE [Concomitant]
     Indication: ARTHRITIS
  17. METHYLPREDNISOLONE [Concomitant]
     Indication: SWELLING

REACTIONS (1)
  - ANAPHYLACTIC REACTION [None]
